FAERS Safety Report 7735319-X (Version None)
Quarter: 2011Q3

REPORT INFORMATION
  Report Type: 
  Country: None (occurrence: None)
  Receive Date: 20110907
  Receipt Date: 20110830
  Transmission Date: 20111222
  Serious: Yes (Hospitalization, Other)
  Sender: FDA-Public Use
  Company Number: US-SANOFI-AVENTIS-2011SA055856

PATIENT
  Sex: Male

DRUGS (3)
  1. LANTUS [Suspect]
     Indication: DIABETES MELLITUS
     Route: 058
  2. SOLOSTAR [Suspect]
     Indication: DIABETES MELLITUS
  3. VICTOZA [Concomitant]

REACTIONS (2)
  - TRANSIENT ISCHAEMIC ATTACK [None]
  - HIP ARTHROPLASTY [None]
